FAERS Safety Report 12982825 (Version 1)
Quarter: 2016Q4

REPORT INFORMATION
  Report Type: Spontaneous
  Country: GB (occurrence: GB)
  Receive Date: 20161129
  Receipt Date: 20161129
  Transmission Date: 20170207
  Serious: Yes (Life-Threatening, Hospitalization, Other)
  Sender: FDA-Public Use
  Company Number: GB-PFIZER INC-2016551241

PATIENT
  Age: 62 Year
  Sex: Male

DRUGS (6)
  1. TEICOPLANIN [Suspect]
     Active Substance: TEICOPLANIN
     Indication: PNEUMONIA
     Dosage: 600 MG, DAILY
     Route: 040
     Dates: start: 20161018, end: 20161028
  2. ENOXAPARIN [Concomitant]
     Active Substance: ENOXAPARIN
     Dosage: 40 MG, 1X/DAY
     Route: 058
     Dates: start: 20160923
  3. MEROPENEM. [Suspect]
     Active Substance: MEROPENEM
     Indication: PNEUMONIA
     Dosage: 1 G, 3X/DAY
     Route: 040
     Dates: start: 20161018, end: 20161028
  4. ASPIRIN /00002701/ [Concomitant]
     Active Substance: ASPIRIN
     Dosage: 75 MG, 1X/DAY
     Route: 048
  5. SENNA /00142201/ [Concomitant]
     Active Substance: SENNA LEAF
     Dosage: 15 MG, 2X/DAY
     Route: 048
  6. CASPOFUNGIN [Suspect]
     Active Substance: CASPOFUNGIN
     Indication: PNEUMONIA
     Dosage: 70 MG, DAILY
     Route: 041
     Dates: start: 20161020, end: 20161028

REACTIONS (6)
  - Platelet count decreased [Recovered/Resolved]
  - White blood cell count decreased [Recovered/Resolved]
  - Neutrophil count decreased [Recovered/Resolved]
  - Bone marrow disorder [Recovered/Resolved]
  - Monocyte count decreased [Recovered/Resolved]
  - Lymphocyte count decreased [Recovered/Resolved]

NARRATIVE: CASE EVENT DATE: 20161022
